FAERS Safety Report 14785577 (Version 6)
Quarter: 2018Q3

REPORT INFORMATION
  Report Type: Spontaneous
  Country: SE (occurrence: SE)
  Receive Date: 20180420
  Receipt Date: 20180710
  Transmission Date: 20181010
  Serious: Yes (Other)
  Sender: FDA-Public Use
  Company Number: SE-PFIZER INC-2018156045

PATIENT
  Age: 86 Year
  Sex: Male

DRUGS (6)
  1. AMOXICILLIN W/CLAVULANIC ACID [Interacting]
     Active Substance: AMOXICILLIN\CLAVULANIC ACID
     Indication: RESPIRATORY TRACT INFECTION BACTERIAL
     Dosage: UNK (FOR 4 DAYS)
     Route: 048
  2. PARACETAMOL [Concomitant]
     Active Substance: ACETAMINOPHEN
     Dosage: UNK
  3. ENALAPRIL [Interacting]
     Active Substance: ENALAPRIL
     Indication: CARDIOMYOPATHY
     Dosage: 5 MG, DAILY (LONG TERM)
     Route: 048
  4. ACETYLSALICYLIC ACID [Interacting]
     Active Substance: ASPIRIN
     Indication: CARDIOMYOPATHY
     Dosage: 300 MG, DAILY (LONG TERM)
     Route: 048
  5. CIPROFLOXACIN. [Suspect]
     Active Substance: CIPROFLOXACIN
     Indication: RESPIRATORY TRACT INFECTION BACTERIAL
     Dosage: 1000 MG, 1X/DAY (FOR 4 DAYS)
     Route: 048
  6. FUROSEMIDE. [Concomitant]
     Active Substance: FUROSEMIDE
     Dosage: UNK

REACTIONS (2)
  - Drug interaction [Unknown]
  - Acute kidney injury [Unknown]
